FAERS Safety Report 21957326 (Version 1)
Quarter: 2023Q1

REPORT INFORMATION
  Report Type: Spontaneous
  Country: US (occurrence: None)
  Receive Date: 20230203
  Receipt Date: 20230203
  Transmission Date: 20230417
  Serious: Yes (Death, Life-Threatening, Hospitalization, Disabling)
  Sender: FDA-Public Use
  Company Number: None

PATIENT
  Sex: Male
  Weight: 102.9 kg

DRUGS (2)
  1. RELUGOLIX [Suspect]
     Active Substance: RELUGOLIX
     Indication: Prostate cancer
     Dosage: FREQUENCY : DAILY;?
     Dates: start: 20220131, end: 20220520
  2. RELUGOLIX [Concomitant]
     Active Substance: RELUGOLIX
     Dates: start: 20220131, end: 20220520

REACTIONS (3)
  - Rhabdomyolysis [None]
  - Acute kidney injury [None]
  - Dialysis [None]
